FAERS Safety Report 6765872-4 (Version None)
Quarter: 2010Q2

REPORT INFORMATION
  Report Type: 
  Country: None (occurrence: None)
  Receive Date: 20100611
  Receipt Date: 20100609
  Transmission Date: 20101027
  Serious: Yes (Death)
  Sender: FDA-Public Use
  Company Number: GB-ASTRAZENECA-2010SE26670

PATIENT
  Age: 48 Year
  Sex: Male

DRUGS (20)
  1. MEROPENEM [Suspect]
     Indication: OSTEOMYELITIS
     Route: 042
     Dates: start: 20100409, end: 20100416
  2. MEROPENEM [Suspect]
     Route: 042
     Dates: start: 20100428
  3. CIPROFLOXACIN [Concomitant]
     Route: 048
     Dates: start: 20100403, end: 20100408
  4. AMPICILLIN SODIUM/SULBACTAM SODIUM [Concomitant]
     Indication: OSTEOMYELITIS
     Route: 042
     Dates: start: 20100328, end: 20100402
  5. ENOXAPARIN SODIUM [Concomitant]
     Indication: PROPHYLAXIS
     Route: 058
     Dates: start: 20100411
  6. EZETIMIBE [Concomitant]
     Route: 048
  7. FEXOFENADINE [Concomitant]
     Route: 048
  8. GENTAMICIN [Concomitant]
     Indication: OSTEOMYELITIS
     Route: 042
     Dates: start: 20100328, end: 20100328
  9. HYPURIN BOVINE ISOPHANE [Concomitant]
     Route: 058
  10. IRBESARTAN [Concomitant]
     Route: 048
     Dates: start: 20100329, end: 20100402
  11. OMEPRAZOLE [Concomitant]
     Route: 048
     Dates: start: 20100328, end: 20100409
  12. PARACETAMOL [Concomitant]
     Indication: PAIN
     Dates: start: 20100409, end: 20100414
  13. PETROLEUM JELLY [Concomitant]
     Indication: RASH
     Route: 061
     Dates: start: 20100413
  14. PRAVASTATIN [Concomitant]
     Route: 048
  15. SPIRONOLACTONE [Concomitant]
     Route: 048
     Dates: start: 20100402, end: 20100409
  16. SYMBICORT [Concomitant]
     Route: 055
  17. TIOTROPIUM BROMIDE [Concomitant]
     Route: 055
  18. TRAMADOL [Concomitant]
     Indication: PAIN
     Route: 048
     Dates: start: 20100328, end: 20100331
  19. TRAMADOL [Concomitant]
     Route: 048
     Dates: start: 20100401, end: 20100409
  20. VANCOMYCIN [Concomitant]
     Indication: OSTEOMYELITIS
     Route: 042
     Dates: start: 20100328, end: 20100409

REACTIONS (1)
  - STEVENS-JOHNSON SYNDROME [None]
